FAERS Safety Report 13815180 (Version 2)
Quarter: 2017Q3

REPORT INFORMATION
  Report Type: Spontaneous
  Country: JP (occurrence: JP)
  Receive Date: 20170731
  Receipt Date: 20170831
  Transmission Date: 20171127
  Serious: Yes (Hospitalization, Other)
  Sender: FDA-Public Use
  Company Number: JP-PFIZER INC-2017328801

PATIENT
  Age: 76 Year
  Sex: Male

DRUGS (1)
  1. MIGLITOL. [Suspect]
     Active Substance: MIGLITOL
     Indication: PANCREATOGENOUS DIABETES
     Dosage: 50 MG, 3X/DAY (TID)
     Route: 048
     Dates: start: 20150513, end: 2017

REACTIONS (1)
  - Ileus [Recovering/Resolving]

NARRATIVE: CASE EVENT DATE: 20170428
